FAERS Safety Report 7235845 (Version 2)
Quarter: 2014Q2

REPORT INFORMATION
  Report Type: Spontaneous
  Country: None (occurrence: None)
  Receive Date: 20091215
  Receipt Date: 20140415
  Transmission Date: 20141212
  Serious: Yes (Other)
  Sender: FDA-Public Use
  Company Number: AUR-APL-2009-01459

PATIENT
  Age: 39 Year
  Sex: Male

DRUGS (3)
  1. RIBAVIRIN (RIBAVIRIN) [Suspect]
     Indication: HEPATITIS C
     Dosage: 800MG - DAIILY - UNK
     Dates: start: 200812
  2. AZATHIOPRINE [Suspect]
     Indication: PRODUCT USED FOR UNKNOWN INDICATION
     Dosage: 2.5MG/KG/DAY - UNK
  3. PEGINTRON [Suspect]
     Indication: HEPATITIS C
     Dosage: 1.5UG/KG/WEEK-UNK
     Dates: start: 200812

REACTIONS (3)
  - Pancytopenia [None]
  - Anaemia [None]
  - Neutrophil count decreased [None]
